FAERS Safety Report 9735523 (Version 1)
Quarter: 2013Q4

REPORT INFORMATION
  Report Type: Spontaneous
  Country: US (occurrence: US)
  Receive Date: 20131206
  Receipt Date: 20131206
  Transmission Date: 20140711
  Serious: No
  Sender: FDA-Public Use
  Company Number: US-GILEAD-2009-0023567

PATIENT
  Sex: Female
  Weight: 89.81 kg

DRUGS (18)
  1. LETAIRIS [Suspect]
     Indication: PULMONARY ARTERIAL HYPERTENSION
     Route: 048
     Dates: start: 20090702
  2. LASIX [Concomitant]
  3. DARVOCET-N [Concomitant]
  4. HUMALOG [Concomitant]
  5. FORTEO [Concomitant]
  6. PROTONIX [Concomitant]
  7. MIRAPEX [Concomitant]
  8. MULTIVITAMINS [Concomitant]
  9. ATARAX [Concomitant]
  10. MELOXICAM [Concomitant]
  11. CLARITIN [Concomitant]
  12. LANTUS [Concomitant]
  13. KLOR-CON [Concomitant]
  14. ZOLPIDEM [Concomitant]
  15. VESICARE [Concomitant]
  16. AZO [Concomitant]
  17. IRON [Concomitant]
  18. TIZADINE [Concomitant]

REACTIONS (2)
  - Face oedema [Recovered/Resolved]
  - Oedema peripheral [Recovered/Resolved]
